FAERS Safety Report 5473006-1 (Version None)
Quarter: 2007Q4

REPORT INFORMATION
  Report Type: 
  Country: None (occurrence: None)
  Receive Date: 20071001
  Receipt Date: 20070214
  Transmission Date: 20080405
  Serious: No
  Sender: FDA-Public Use
  Company Number: US-ASTRAZENECA-2007UW02959

PATIENT
  Age: 61 Year
  Sex: Female
  Weight: 81.6 kg

DRUGS (3)
  1. ARIMIDEX [Suspect]
     Indication: BREAST CANCER
     Route: 048
  2. MOTRIN [Concomitant]
  3. FOSAMAX [Concomitant]

REACTIONS (4)
  - MUSCLE SPASMS [None]
  - MUSCLE STRAIN [None]
  - MUSCLE TIGHTNESS [None]
  - MYALGIA [None]
